FAERS Safety Report 8865259 (Version 1)
Quarter: 2012Q4

REPORT INFORMATION
  Report Type: 
  Country: US (occurrence: US)
  Receive Date: 20121024
  Receipt Date: 20121024
  Transmission Date: 20130627
  Serious: No
  Sender: FDA-Public Use
  Company Number: US-AMGEN-USASP2012001973

PATIENT
  Sex: Female
  Weight: 77.1 kg

DRUGS (8)
  1. ENBREL [Suspect]
     Indication: PRODUCT USED FOR UNKNOWN INDICATION
     Dosage: 50 mg, qwk
  2. FOSAMAX [Concomitant]
     Dosage: 35 mg, UNK
  3. XANAX [Concomitant]
     Dosage: 0.25 mg, UNK
  4. SOMA [Concomitant]
     Dosage: 250 mg, UNK
  5. PREDNISONE [Concomitant]
     Dosage: 1 mg, UNK
  6. OXYCODONE [Concomitant]
     Dosage: 5 mg, UNK
  7. PERCOCET                           /00446701/ [Concomitant]
     Dosage: UNK
  8. CALCIUM [Concomitant]

REACTIONS (1)
  - Weight increased [Unknown]
